FAERS Safety Report 8455722-2 (Version None)
Quarter: 2012Q2

REPORT INFORMATION
  Report Type: 
  Country: None (occurrence: None)
  Receive Date: 20120621
  Receipt Date: 20120611
  Transmission Date: 20120825
  Serious: Yes (Other)
  Sender: FDA-Public Use
  Company Number: US-BAYER-2012-058459

PATIENT
  Sex: Female

DRUGS (1)
  1. ALEVE (CAPLET) [Suspect]
     Indication: ARTHRITIS
     Dosage: 1 UNK, UNK
     Route: 048
     Dates: start: 20120401, end: 20120611

REACTIONS (5)
  - HAEMORRHAGE [None]
  - HAEMORRHOIDAL HAEMORRHAGE [None]
  - PRURITUS GENITAL [None]
  - SWELLING [None]
  - ERYTHEMA [None]
